FAERS Safety Report 13692319 (Version 1)
Quarter: 2017Q2

REPORT INFORMATION
  Report Type: Spontaneous
  Country: US (occurrence: US)
  Receive Date: 20170627
  Receipt Date: 20170627
  Transmission Date: 20170830
  Serious: Yes (Hospitalization)
  Sender: FDA-Public Use
  Company Number: US-ASTRAZENECA-2015SF21802

PATIENT
  Age: 46 Year
  Sex: Female

DRUGS (49)
  1. ASPIRIN. [Suspect]
     Active Substance: ASPIRIN
     Route: 065
  2. ZYRTEC [Suspect]
     Active Substance: CETIRIZINE HYDROCHLORIDE
     Route: 048
  3. LIPITOR [Suspect]
     Active Substance: ATORVASTATIN CALCIUM
     Route: 048
  4. ENBREL [Suspect]
     Active Substance: ETANERCEPT
     Dosage: 50 MG/ML, INJECT 50 MG UNDER THE SKIN ONE TIME A WEEK
     Route: 065
  5. ABILIFY [Concomitant]
     Active Substance: ARIPIPRAZOLE
     Route: 048
  6. EPINEPHRINE. [Concomitant]
     Active Substance: EPINEPHRINE
     Indication: ANAPHYLACTIC REACTION
     Dosage: 0.3 MG/0.3ML, INJECT 0.3 ML INTO THE MUSCLE ONE TIME AS NEEDED
  7. LIDODERM [Concomitant]
     Active Substance: LIDOCAINE
     Dosage: PLACE 1 PATCH ONTO THE SKIN EVERY 12 HOURS.
  8. TYLENOL ARTHRITIS PAIN [Concomitant]
     Active Substance: ACETAMINOPHEN
     Indication: PAIN
     Dosage: 1 TAB EVERY EIGHT HOURS AS NEEDED.
     Route: 048
  9. PROVENTIL [Concomitant]
     Active Substance: ALBUTEROL
     Indication: DYSPNOEA
  10. PREMARIN [Concomitant]
     Active Substance: ESTROGENS, CONJUGATED
     Dosage: APPLY SMALL AMOUNT AROUND THE URETHRA AND VAGINAL OPENING
     Route: 061
  11. NORCO [Concomitant]
     Active Substance: ACETAMINOPHEN\HYDROCODONE BITARTRATE
     Indication: PAIN
     Dosage: 5-325 MG, 1 TABS BY MOUTH EVERY EIGHT HOURS AS NEEDED.
  12. EPINEPHRINE. [Concomitant]
     Active Substance: EPINEPHRINE
     Indication: ANAPHYLACTIC REACTION
     Dosage: 0.3 ML ONE TIME AS NEEDED
     Route: 030
  13. ZOFRAN [Concomitant]
     Active Substance: ONDANSETRON HYDROCHLORIDE
     Indication: NAUSEA
     Route: 048
  14. ZOMIG [Suspect]
     Active Substance: ZOLMITRIPTAN
     Route: 065
  15. ESTRACE [Concomitant]
     Active Substance: ESTRADIOL
     Dosage: ORA
  16. FLONASE [Concomitant]
     Active Substance: FLUTICASONE PROPIONATE
     Indication: MULTIPLE ALLERGIES
     Dosage: 50 MCG/ACT, 2 SPRAYS NASALLY ONE TIME A DAY AS NEEDED
     Route: 045
  17. ARAVA [Concomitant]
     Active Substance: LEFLUNOMIDE
  18. ADDERALL [Concomitant]
     Active Substance: AMPHETAMINE ASPARTATE\AMPHETAMINE SULFATE\DEXTROAMPHETAMINE SACCHARATE\DEXTROAMPHETAMINE SULFATE
     Indication: INSOMNIA
  19. PRILOSEC [Suspect]
     Active Substance: OMEPRAZOLE MAGNESIUM
     Dosage: 1 CAP BY MOUTH TWO TIMES A DAY BEFORE MEALS.
     Route: 048
  20. TEMOVATE [Concomitant]
     Active Substance: CLOBETASOL PROPIONATE
     Dosage: APPLY TOPICALLY AS NEEDED. APPLY THE SMALLE#T AMOUNT THAT WLLL COVER AFFGGTED AREA.
     Route: 061
  21. EMLA [Concomitant]
     Active Substance: LIDOCAINE\PRILOCAINE
     Indication: PAIN
     Dosage: 2.5-2.5 %, APPLY TOPICALLY AS NEEDED
     Route: 061
  22. SYMBICORT [Concomitant]
     Active Substance: BUDESONIDE\FORMOTEROL FUMARATE DIHYDRATE
     Dosage: 2  PUFFS INTO LUNGS TWO TIMES A DAY
     Route: 055
  23. TAMBOCOR [Concomitant]
     Active Substance: FLECAINIDE ACETATE
     Route: 048
  24. NEURONTIN [Suspect]
     Active Substance: GABAPENTIN
     Route: 048
  25. LIORESAL [Concomitant]
     Active Substance: BACLOFEN
     Dosage: 1 TAB BY MOUTH TWO TIMES A DAY WITH FOOD.
     Route: 048
  26. KLONOPIN [Concomitant]
     Active Substance: CLONAZEPAM
     Route: 048
  27. BENTYL [Concomitant]
     Active Substance: DICYCLOMINE HYDROCHLORIDE
     Dosage: 1 CAP BY MOUTH FOUR TIMES A DAY BEFORE MEALS.
     Route: 048
  28. BENADRYL [Concomitant]
     Active Substance: DIPHENHYDRAMINE HYDROCHLORIDE
     Indication: MULTIPLE ALLERGIES
     Dosage: TAKE 1 CAP EVERY SIX HOURS AS NEEDED
  29. NORCO [Concomitant]
     Active Substance: ACETAMINOPHEN\HYDROCODONE BITARTRATE
     Indication: PAIN
     Dosage: 5-325 MG, 2 TABS BY MOUTH EVERY EIGHT HOURS AS NEEDED.
  30. NORCO [Concomitant]
     Active Substance: ACETAMINOPHEN\HYDROCODONE BITARTRATE
     Indication: PAIN
     Dosage: 5-325 MG, 1 TABS BY MOUTH EVERY FOUR HOURS AS NEEDED.
  31. LISINOPRIL. [Suspect]
     Active Substance: LISINOPRIL
     Route: 048
  32. XANAX [Suspect]
     Active Substance: ALPRAZOLAM
     Indication: ANXIETY
     Dosage: 1 TAB BY MOUTH THREE TIMES A DAY AS NEEDED
     Route: 048
  33. MYCOLOG II [Concomitant]
     Dosage: 100000-0.1 UNIT/GM- PERCENT, APPLY TOPICALLY TWO TIMES A DAY.
     Route: 061
  34. REMERON [Concomitant]
     Active Substance: MIRTAZAPINE
     Route: 048
  35. VENTOLIN [Concomitant]
     Active Substance: ALBUTEROL SULFATE
     Indication: DYSPNOEA
  36. PROAIR RESPICLICK [Concomitant]
     Active Substance: ALBUTEROL SULFATE
     Indication: DYSPNOEA
  37. DESVENLAFAXINE. [Concomitant]
     Active Substance: DESVENLAFAXINE
     Indication: MAJOR DEPRESSION
     Route: 048
  38. ZOFRAN [Concomitant]
     Active Substance: ONDANSETRON HYDROCHLORIDE
     Indication: VOMITING
     Route: 048
  39. ASPIRIN. [Suspect]
     Active Substance: ASPIRIN
     Dosage: ASPIRIN BUFFERED
     Route: 065
  40. NORVASC [Suspect]
     Active Substance: AMLODIPINE BESYLATE
     Route: 048
  41. LYRICA [Suspect]
     Active Substance: PREGABALIN
     Dosage: 2-3 CAPSULE THREE TIMES ADAY
     Route: 048
     Dates: start: 20170605
  42. LYRICA [Suspect]
     Active Substance: PREGABALIN
     Dosage: 1 CAPSULE THREE TIMES ADAY
     Route: 048
  43. IMODIUM [Concomitant]
     Active Substance: LOPERAMIDE HYDROCHLORIDE
     Route: 048
  44. SECUKINUMAB [Concomitant]
     Active Substance: SECUKINUMAB
  45. MULTIVITAMIN [Concomitant]
     Active Substance: VITAMINS
     Route: 048
  46. LYRICA [Suspect]
     Active Substance: PREGABALIN
     Dosage: 1-2 TABLET THREE TIMES ADAY
     Route: 048
     Dates: start: 20150824
  47. ADDERALL XR [Concomitant]
     Active Substance: AMPHETAMINE ASPARTATE\AMPHETAMINE SULFATE\DEXTROAMPHETAMINE SACCHARATE\DEXTROAMPHETAMINE SULFATE
     Dosage: 1 CAP BY MOUTH TWO TIMES A DAY, SHOULD BE GIVEN BY NOON. SWALLOW WHOLE OR OPEN AND SPRINKLE CONTENTS
     Route: 048
  48. ASCORBIC ACID. [Concomitant]
     Active Substance: ASCORBIC ACID
  49. IRON [Concomitant]
     Active Substance: IRON
     Route: 048

REACTIONS (3)
  - Off label use [Unknown]
  - Anaphylactic reaction [Unknown]
  - Drug hypersensitivity [Unknown]
